FAERS Safety Report 8784167 (Version 2)
Quarter: 2012Q4

REPORT INFORMATION
  Report Type: 
  Country: US (occurrence: US)
  Receive Date: 20120913
  Receipt Date: 20121113
  Transmission Date: 20130627
  Serious: No
  Sender: FDA-Public Use
  Company Number: US-ASTRAZENECA-2012SE69240

PATIENT
  Age: 19747 Day
  Sex: Male
  Weight: 99.3 kg

DRUGS (14)
  1. BRILINTA [Suspect]
     Indication: ACUTE CORONARY SYNDROME
     Route: 048
     Dates: start: 201208, end: 201208
  2. BRILINTA [Suspect]
     Indication: CORONARY ARTERIAL STENT INSERTION
     Route: 048
     Dates: start: 201208, end: 201208
  3. BRILINTA [Suspect]
     Indication: MYOCARDIAL INFARCTION
     Route: 048
     Dates: start: 201208, end: 201208
  4. BRILINTA [Suspect]
     Indication: CORONARY ARTERY DISEASE
     Route: 048
     Dates: start: 201208, end: 201208
  5. LIPITOR [Concomitant]
     Indication: BLOOD CHOLESTEROL INCREASED
  6. AMIODARONE [Concomitant]
     Indication: VENTRICULAR TACHYCARDIA
  7. AMIODARONE [Concomitant]
     Indication: VENTRICULAR FIBRILLATION
  8. ASA [Concomitant]
     Indication: MYOCARDIAL INFARCTION
  9. ASA [Concomitant]
     Indication: CORONARY ARTERY DISEASE
  10. METOPROLOL TARTRATE [Concomitant]
     Indication: MYOCARDIAL INFARCTION
  11. METOPROLOL TARTRATE [Concomitant]
     Indication: CORONARY ARTERY DISEASE
  12. PROTONIX [Concomitant]
     Indication: GASTRITIS PROPHYLAXIS
  13. PROTONIX [Concomitant]
     Indication: ANTIPLATELET THERAPY
  14. CRESTOR [Concomitant]

REACTIONS (2)
  - Myalgia [Recovered/Resolved]
  - Arthralgia [Recovered/Resolved]
